FAERS Safety Report 8695235 (Version 2)
Quarter: 2013Q4

REPORT INFORMATION
  Report Type: Spontaneous
  Country: US (occurrence: US)
  Receive Date: 20120731
  Receipt Date: 20131101
  Transmission Date: 20140711
  Serious: Yes (Other)
  Sender: FDA-Public Use
  Company Number: US-009507513-1207USA010225

PATIENT
  Age: 88 Year
  Sex: Male

DRUGS (6)
  1. ZOCOR [Suspect]
     Route: 048
  2. PLAVIX [Suspect]
  3. SIGMART [Suspect]
  4. BAYASPIRIN [Suspect]
  5. TAKEPRON [Suspect]
  6. NU-LOTAN [Suspect]

REACTIONS (1)
  - Jaundice cholestatic [Unknown]
